FAERS Safety Report 10073301 (Version 1)
Quarter: 2014Q2

REPORT INFORMATION
  Report Type: Spontaneous
  Country: FR (occurrence: FR)
  Receive Date: 20140411
  Receipt Date: 20140411
  Transmission Date: 20141212
  Serious: Yes (Hospitalization)
  Sender: FDA-Public Use
  Company Number: FR-GLAXOSMITHKLINE-B0984434A

PATIENT
  Age: 37 Year
  Sex: Female

DRUGS (1)
  1. CLAVENTIN [Suspect]
     Indication: STAPHYLOCOCCAL SEPSIS
     Dosage: 3G FOUR TIMES PER DAY
     Route: 042
     Dates: start: 20140226, end: 20140317

REACTIONS (6)
  - Encephalopathy [Recovered/Resolved]
  - Generalised tonic-clonic seizure [Recovered/Resolved]
  - Altered state of consciousness [Recovered/Resolved]
  - Fatigue [Recovered/Resolved]
  - Repetitive speech [Recovered/Resolved]
  - Incorrect dosage administered [Unknown]
